FAERS Safety Report 24054665 (Version 1)
Quarter: 2024Q3

REPORT INFORMATION
  Report Type: Spontaneous
  Country: US (occurrence: None)
  Receive Date: 20240703
  Receipt Date: 20240703
  Transmission Date: 20241016
  Serious: Yes (Hospitalization)
  Sender: Public
  Company Number: None

PATIENT
  Sex: Male

DRUGS (18)
  1. TASIGNA [Suspect]
     Active Substance: NILOTINIB
     Indication: Chronic myeloid leukaemia
     Dosage: FREQUENCY : TWICE A DAY;?
  2. FUROSEMIDE [Concomitant]
     Active Substance: FUROSEMIDE
  3. METOPROLOL SUCCINATE [Concomitant]
     Active Substance: METOPROLOL SUCCINATE
  4. FLUOXETINE [Concomitant]
     Active Substance: FLUOXETINE HYDROCHLORIDE
  5. SERTRALINE [Concomitant]
     Active Substance: SERTRALINE HYDROCHLORIDE
  6. LINZESS [Concomitant]
     Active Substance: LINACLOTIDE
  7. MELATONIN [Concomitant]
     Active Substance: MELATONIN
  8. PROBIOTICS NOS [Concomitant]
     Active Substance: PROBIOTICS NOS
  9. NITROGLYCERIN [Concomitant]
     Active Substance: NITROGLYCERIN
  10. PEPTO BISMOL [Concomitant]
  11. ALLOPURINOL [Concomitant]
     Active Substance: ALLOPURINOL
  12. CEPHALEXIN [Concomitant]
     Active Substance: CEPHALEXIN
  13. CEPHALEXIN [Concomitant]
     Active Substance: CEPHALEXIN
  14. ASPIRIN [Concomitant]
     Active Substance: ASPIRIN
  15. LISINOPRIL [Concomitant]
     Active Substance: LISINOPRIL
  16. ATORVASTATIN [Concomitant]
     Active Substance: ATORVASTATIN
  17. FINASTERIDE [Concomitant]
     Active Substance: FINASTERIDE
  18. LOPERAMIDE [Concomitant]
     Active Substance: LOPERAMIDE

REACTIONS (1)
  - Cardiac failure congestive [None]
